FAERS Safety Report 9845017 (Version 1)
Quarter: 2014Q1

REPORT INFORMATION
  Report Type: Spontaneous
  Country: US (occurrence: None)
  Receive Date: 20140122
  Receipt Date: 20140122
  Transmission Date: 20141002
  Serious: Yes (Death)
  Sender: FDA-Public Use
  Company Number: 2014AP000407

PATIENT
  Age: 53 Year
  Sex: Male

DRUGS (4)
  1. TRAMADOL HYDROCHLORIDE TABLETS [Suspect]
  2. ZOLPIDEM TARTRATE TABLETS [Suspect]
  3. OPIOID [Suspect]
  4. MARIJUANA [Suspect]

REACTIONS (1)
  - Death [None]
